FAERS Safety Report 23338371 (Version 1)
Quarter: 2023Q4

REPORT INFORMATION
  Report Type: Spontaneous
  Country: SE (occurrence: SE)
  Receive Date: 20231226
  Receipt Date: 20231226
  Transmission Date: 20240110
  Serious: Yes (Hospitalization, Other)
  Sender: FDA-Public Use
  Company Number: None

PATIENT
  Age: 33 Year
  Sex: Female
  Weight: 60 kg

DRUGS (1)
  1. HYRIMOZ [Suspect]
     Active Substance: ADALIMUMAB-ADAZ
     Indication: Crohn^s disease
     Dosage: 40.000MG 2 WEEKS
     Route: 058
     Dates: start: 20211201, end: 20230419

REACTIONS (1)
  - Coagulopathy [Recovered/Resolved]

NARRATIVE: CASE EVENT DATE: 20230419
